FAERS Safety Report 11555969 (Version 3)
Quarter: 2015Q4

REPORT INFORMATION
  Report Type: Spontaneous
  Country: JP (occurrence: JP)
  Receive Date: 20150925
  Receipt Date: 20151009
  Transmission Date: 20160304
  Serious: Yes (Disabling)
  Sender: FDA-Public Use
  Company Number: JP-SA-2015SA142911

PATIENT
  Age: 80 Year
  Sex: Male

DRUGS (4)
  1. KAKKONTOKASENKYUSHIN I [Suspect]
     Active Substance: HERBALS
     Indication: RHINITIS ALLERGIC
     Route: 048
     Dates: start: 20150825, end: 20150827
  2. DELLEGRA [Suspect]
     Active Substance: FEXOFENADINE HYDROCHLORIDE\PSEUDOEPHEDRINE HYDROCHLORIDE
     Indication: RHINITIS ALLERGIC
     Route: 048
     Dates: start: 20150825, end: 20150827
  3. DELLEGRA [Suspect]
     Active Substance: FEXOFENADINE HYDROCHLORIDE\PSEUDOEPHEDRINE HYDROCHLORIDE
     Indication: NASAL CONGESTION
     Route: 048
     Dates: start: 20150825, end: 20150827
  4. KAKKONTOKASENKYUSHIN I [Suspect]
     Active Substance: HERBALS
     Indication: NASAL CONGESTION
     Route: 048
     Dates: start: 20150825, end: 20150827

REACTIONS (1)
  - Urinary retention [Recovered/Resolved]

NARRATIVE: CASE EVENT DATE: 20150827
